FAERS Safety Report 10640726 (Version 1)
Quarter: 2014Q4

REPORT INFORMATION
  Report Type: Spontaneous
  Country: US (occurrence: None)
  Receive Date: 20141208
  Receipt Date: 20141208
  Transmission Date: 20150529
  Serious: Yes (Other)
  Sender: FDA-Public Use
  Company Number: None

PATIENT
  Age: 57 Year
  Sex: Female
  Weight: 55.34 kg

DRUGS (2)
  1. ZORVOLEX [Suspect]
     Active Substance: DICLOFENAC
     Indication: EXPOSURE TO RADIATION
     Route: 048
  2. ZORVOLEX [Suspect]
     Active Substance: DICLOFENAC
     Indication: NEURITIS
     Route: 048

REACTIONS (2)
  - Abdominal pain upper [None]
  - Gastritis [None]

NARRATIVE: CASE EVENT DATE: 20141117
